FAERS Safety Report 21039790 (Version 5)
Quarter: 2022Q4

REPORT INFORMATION
  Report Type: Spontaneous
  Country: CA (occurrence: CA)
  Receive Date: 20220704
  Receipt Date: 20221114
  Transmission Date: 20230113
  Serious: Yes (Other)
  Sender: FDA-Public Use
  Company Number: CA-PFIZER INC-202200642885

PATIENT
  Age: 61 Year
  Sex: Male

DRUGS (11)
  1. REVATIO [Suspect]
     Active Substance: SILDENAFIL CITRATE
     Indication: Pulmonary hypertension
     Dosage: 20 MILLIGRAM (20 MG)
     Route: 048
     Dates: start: 20220408, end: 20220706
  2. REVATIO [Suspect]
     Active Substance: SILDENAFIL CITRATE
     Indication: Pulmonary arterial hypertension
  3. REVATIO [Suspect]
     Active Substance: SILDENAFIL CITRATE
     Indication: Connective tissue disorder
  4. ADCIRCA [Concomitant]
     Active Substance: TADALAFIL
     Indication: Product used for unknown indication
     Dosage: UNK
     Route: 065
  5. DIGOXIN [Concomitant]
     Active Substance: DIGOXIN
     Indication: Product used for unknown indication
     Dosage: 0.062 MILLIGRAM (0.062 MG)
     Route: 065
  6. HYDROMORPHONE [Concomitant]
     Active Substance: HYDROMORPHONE
     Indication: Product used for unknown indication
     Dosage: UNK
     Route: 065
  7. LASIX [Concomitant]
     Active Substance: FUROSEMIDE
     Indication: Product used for unknown indication
     Dosage: UNK
     Route: 065
  8. OPSUMIT [Concomitant]
     Active Substance: MACITENTAN
     Indication: Product used for unknown indication
     Dosage: UNK
     Route: 065
  9. SYNTHROID [Concomitant]
     Active Substance: LEVOTHYROXINE SODIUM
     Indication: Product used for unknown indication
     Dosage: UNK
     Route: 065
  10. TRAZODONE [Concomitant]
     Active Substance: TRAZODONE HYDROCHLORIDE
     Indication: Product used for unknown indication
     Dosage: UNK
     Route: 065
  11. WARFARIN [Concomitant]
     Active Substance: WARFARIN
     Indication: Product used for unknown indication
     Dosage: UNK
     Route: 065

REACTIONS (17)
  - Pericardial effusion [Not Recovered/Not Resolved]
  - Oxygen saturation decreased [Not Recovered/Not Resolved]
  - Dyspnoea [Recovering/Resolving]
  - Joint swelling [Unknown]
  - Peripheral swelling [Unknown]
  - Burning sensation [Unknown]
  - Pain [Unknown]
  - Decreased appetite [Not Recovered/Not Resolved]
  - Pruritus [Not Recovered/Not Resolved]
  - Rales [Not Recovered/Not Resolved]
  - Weight increased [Not Recovered/Not Resolved]
  - Fluid retention [Not Recovered/Not Resolved]
  - Haemoglobin decreased [Recovering/Resolving]
  - Epistaxis [Not Recovered/Not Resolved]
  - Dizziness [Recovering/Resolving]
  - Headache [Unknown]
  - Blood iron decreased [Not Recovered/Not Resolved]

NARRATIVE: CASE EVENT DATE: 20220523
